FAERS Safety Report 17046755 (Version 4)
Quarter: 2019Q4

REPORT INFORMATION
  Report Type: Spontaneous
  Country: JP (occurrence: JP)
  Receive Date: 20191119
  Receipt Date: 20191223
  Transmission Date: 20200122
  Serious: Yes (Death, Life-Threatening, Hospitalization, Other)
  Sender: FDA-Public Use
  Company Number: JP-ADVANZ PHARMA-201911001684

PATIENT

DRUGS (30)
  1. VALGANCICLOVIR HYDROCHLORIDE. [Suspect]
     Active Substance: VALGANCICLOVIR HYDROCHLORIDE
     Indication: CYTOMEGALOVIRUS INFECTION
     Dosage: 1T/1X
     Route: 048
     Dates: start: 20190422, end: 20190424
  2. MEXITIL [Concomitant]
     Active Substance: MEXILETINE HYDROCHLORIDE
     Indication: VENTRICULAR EXTRASYSTOLES
     Dosage: UNK,100
  3. MEVALOTIN [Concomitant]
     Active Substance: PRAVASTATIN SODIUM
     Indication: LIPID METABOLISM DISORDER
     Dosage: UNK,10
     Dates: start: 20190327
  4. TAKECAB [Concomitant]
     Active Substance: VONOPRAZAN FUMURATE
     Indication: GASTRIC ULCER
     Dosage: UNK 20
     Dates: start: 20190302, end: 20190418
  5. TORASEMIDE [Concomitant]
     Active Substance: TORSEMIDE
     Indication: CARDIAC FAILURE
     Dosage: UNK,4
  6. MYCOPHENOLATE MOFETIL. [Concomitant]
     Active Substance: MYCOPHENOLATE MOFETIL
     Indication: LUPUS NEPHRITIS
     Dosage: UNK
     Dates: start: 20190327, end: 20190417
  7. ES POLYTAMIN [Concomitant]
     Indication: HYPOPROTEINAEMIA
     Dosage: UNK
     Dates: start: 20190412
  8. HYDROXYCHLOROQUINE SULFATE (AUTHORIZED GENERIC),PLAQUENIL [Suspect]
     Active Substance: HYDROXYCHLOROQUINE SULFATE
     Indication: SYSTEMIC LUPUS ERYTHEMATOSUS
     Dosage: 200 MG, QD
     Route: 048
     Dates: start: 20190316
  9. CALONAL [Concomitant]
     Active Substance: ACETAMINOPHEN
     Indication: PAIN
     Dosage: UNK, 200
  10. AZOSEMIDE [Concomitant]
     Active Substance: AZOSEMIDE
     Indication: CARDIAC FAILURE
     Dosage: UNK,30
     Dates: end: 20190325
  11. MERCAZOLE [Concomitant]
     Active Substance: CARBIMAZOLE
     Indication: HYPERTHYROIDISM
     Dosage: UNK,5
     Dates: end: 20190318
  12. LIPOVAS [Concomitant]
     Active Substance: PRAVASTATIN SODIUM
     Indication: LIPID METABOLISM DISORDER
     Dosage: UNK,5
     Dates: end: 20190326
  13. UNISIA [Concomitant]
     Active Substance: AMLODIPINE BESYLATE\CANDESARTAN CILEXETIL
     Indication: HYPERTENSION
     Dosage: UNK
     Dates: end: 20190327
  14. MYSLEE [Concomitant]
     Active Substance: ZOLPIDEM TARTRATE
     Indication: INSOMNIA
     Dosage: UNK,5
  15. TOYOFAROL [Concomitant]
     Active Substance: ALFACALCIDOL
     Indication: OSTEOPOROSIS
     Dosage: UNK,0.5
     Dates: start: 20190320
  16. ALBUMIN TANNATE [Concomitant]
     Active Substance: ALBUMIN BOVINE\TANNIC ACID
     Indication: DIARRHOEA
     Dosage: UNK
     Dates: start: 20190418, end: 20190422
  17. PREDONINE [Concomitant]
     Active Substance: PREDNISOLONE
     Dosage: UNK (DOSE REDUCED)
  18. BAKTAR [Concomitant]
     Active Substance: SULFAMETHOXAZOLE\TRIMETHOPRIM
     Indication: PROPHYLAXIS
     Dosage: UNKNOWN
  19. IMIDAPRIL HYDROCHLORIDE [Concomitant]
     Active Substance: IMIDAPRIL HYDROCHLORIDE
     Indication: HYPERTENSION
     Dosage: UNK,5
     Dates: start: 20190328
  20. POLAPREZINC [Concomitant]
     Active Substance: POLAPREZINC
     Indication: GASTRIC ULCER
     Dosage: UNK
     Dates: start: 20190419
  21. MYCOPHENOLATE MOFETIL. [Concomitant]
     Active Substance: MYCOPHENOLATE MOFETIL
     Indication: PRODUCT USED FOR UNKNOWN INDICATION
     Dosage: 2 MG, QD
  22. PREDONINE [Concomitant]
     Active Substance: PREDNISOLONE
     Indication: SYSTEMIC LUPUS ERYTHEMATOSUS
     Dosage: UNK,5
  23. BIO-THREE [Concomitant]
     Active Substance: HERBALS
     Indication: ENTEROCOLITIS
     Dosage: UNK
     Dates: start: 20190415
  24. HANGESHASHINTO [Concomitant]
     Active Substance: HERBALS
     Indication: DYSPEPSIA
     Dosage: UNK
     Dates: start: 20190418, end: 20190422
  25. NEXIUM [Concomitant]
     Active Substance: ESOMEPRAZOLE MAGNESIUM
     Indication: GASTRIC ULCER
     Dosage: UNK,20
     Dates: start: 20190419, end: 20190422
  26. BISOPROLOL FUMARATE. [Concomitant]
     Active Substance: BISOPROLOL FUMARATE
     Indication: CARDIAC FAILURE
     Dosage: UNK,2.5
  27. SAMSCA [Concomitant]
     Active Substance: TOLVAPTAN
     Indication: CARDIAC FAILURE
     Dosage: UNK,7.5
     Dates: end: 20190326
  28. PURSENNID [Concomitant]
     Indication: CONSTIPATION
     Dosage: UNK,12
  29. VALGANCICLOVIR HYDROCHLORIDE. [Suspect]
     Active Substance: VALGANCICLOVIR HYDROCHLORIDE
     Dosage: 2T/2X
     Route: 048
     Dates: start: 20190409, end: 20190421
  30. FEBURIC [Concomitant]
     Active Substance: FEBUXOSTAT
     Indication: HYPERURICAEMIA
     Dosage: UNK,20

REACTIONS (15)
  - Arrhythmia [Unknown]
  - Palpitations [Unknown]
  - Diarrhoea [Unknown]
  - General physical health deterioration [Unknown]
  - Decreased appetite [Unknown]
  - Bone marrow failure [Unknown]
  - Breath sounds abnormal [Unknown]
  - Anaemia [Unknown]
  - Ventricular extrasystoles [Unknown]
  - Cytomegalovirus test positive [Recovered/Resolved]
  - Stress cardiomyopathy [Fatal]
  - Ventricular tachycardia [Fatal]
  - Cardiac failure [Unknown]
  - Face oedema [Unknown]
  - Platelet count decreased [Unknown]

NARRATIVE: CASE EVENT DATE: 20190404
